FAERS Safety Report 10020581 (Version 2)
Quarter: 2014Q1

REPORT INFORMATION
  Report Type: Spontaneous
  Country: US (occurrence: US)
  Receive Date: 20140319
  Receipt Date: 20140319
  Transmission Date: 20141002
  Serious: Yes (Hospitalization)
  Sender: FDA-Public Use
  Company Number: US-ROCHE-1348240

PATIENT
  Age: 48 Year
  Sex: Female
  Weight: 118.04 kg

DRUGS (6)
  1. PEGASYS [Suspect]
     Indication: CHRONIC HEPATITIS C
     Route: 058
     Dates: start: 20140207, end: 20140217
  2. CLONAZEPAM [Suspect]
     Indication: PRODUCT USED FOR UNKNOWN INDICATION
     Route: 065
  3. RIBAVIRIN [Suspect]
     Indication: CHRONIC HEPATITIS C
     Dosage: 600-600 DIVIDE DOSE
     Route: 065
     Dates: start: 20140209
  4. RIBAVIRIN [Suspect]
     Dosage: 400-400 DIVIDED DOSE
     Route: 065
  5. SOVALDI [Suspect]
     Indication: CHRONIC HEPATITIS C
     Route: 065
     Dates: start: 20140209
  6. ALEVE [Concomitant]

REACTIONS (9)
  - Local swelling [Unknown]
  - Lip swelling [Unknown]
  - Pain in extremity [Recovered/Resolved]
  - Memory impairment [Recovered/Resolved]
  - Decreased appetite [Recovered/Resolved]
  - Hypertension [Unknown]
  - Medication error [Unknown]
  - Chest pain [Unknown]
  - Hypotension [Unknown]
